FAERS Safety Report 10844067 (Version 3)
Quarter: 2015Q2

REPORT INFORMATION
  Report Type: Spontaneous
  Country: FI (occurrence: FI)
  Receive Date: 20150220
  Receipt Date: 20150612
  Transmission Date: 20150821
  Serious: Yes (Death, Hospitalization, Other)
  Sender: FDA-Public Use
  Company Number: FI-ROCHE-1538265

PATIENT
  Age: 38 Year
  Sex: Male

DRUGS (2)
  1. ZELBORAF [Suspect]
     Active Substance: VEMURAFENIB
     Indication: METASTATIC MALIGNANT MELANOMA
     Route: 065
     Dates: start: 20141226, end: 20141230
  2. ZELBORAF [Suspect]
     Active Substance: VEMURAFENIB
     Route: 065
     Dates: start: 20141231, end: 20150116

REACTIONS (9)
  - Rash erythematous [Not Recovered/Not Resolved]
  - Toxicity to various agents [Fatal]
  - Headache [Recovered/Resolved]
  - Dermatitis infected [Not Recovered/Not Resolved]
  - Pruritus [Not Recovered/Not Resolved]
  - Hepatic failure [Unknown]
  - Cholestatic liver injury [Fatal]
  - Genital herpes [Unknown]
  - Oral candidiasis [Unknown]

NARRATIVE: CASE EVENT DATE: 2015
